FAERS Safety Report 11341069 (Version 1)
Quarter: 2015Q3

REPORT INFORMATION
  Report Type: Spontaneous
  Country: US (occurrence: None)
  Receive Date: 20150803
  Receipt Date: 20150803
  Transmission Date: 20151125
  Serious: No
  Sender: FDA-Public Use
  Company Number: None

PATIENT
  Age: 43 Year
  Sex: Female
  Weight: 63.05 kg

DRUGS (5)
  1. PRAVASTATIN [Concomitant]
     Active Substance: PRAVASTATIN\PRAVASTATIN SODIUM
  2. TRAZODONE [Concomitant]
     Active Substance: TRAZODONE HYDROCHLORIDE
  3. LOREZAPAM [Concomitant]
  4. VENLAFAXINE HCL ER 37.5 MG CAP/VENLAFAXINE HCL CAP SR TEVA PHARMACUTICALS [Suspect]
     Active Substance: VENLAFAXINE HYDROCHLORIDE
     Indication: ANTIDEPRESSANT THERAPY
     Dosage: 7 PILLS
     Route: 048
     Dates: start: 20150714, end: 20150714
  5. METOPROLOL TARTRATE. [Concomitant]
     Active Substance: METOPROLOL TARTRATE

REACTIONS (7)
  - Disturbance in attention [None]
  - Depression [None]
  - Nausea [None]
  - Swelling face [None]
  - Loss of consciousness [None]
  - Balance disorder [None]
  - Feeding disorder [None]

NARRATIVE: CASE EVENT DATE: 20150714
